FAERS Safety Report 7583838-1 (Version None)
Quarter: 2011Q2

REPORT INFORMATION
  Report Type: 
  Country: None (occurrence: None)
  Receive Date: 20110628
  Receipt Date: 20110628
  Transmission Date: 20111010
  Serious: No
  Sender: FDA-Public Use
  Company Number: None

PATIENT
  Age: 49 Year
  Sex: Male
  Weight: 100.6985 kg

DRUGS (2)
  1. ALPRAZOLAM [Suspect]
     Indication: PANIC DISORDER
     Dosage: DAILY
     Dates: start: 20110225, end: 20110425
  2. ALPRAZOLAM [Suspect]
     Indication: ANXIETY
     Dosage: DAILY
     Dates: start: 20110225, end: 20110425

REACTIONS (2)
  - VISUAL IMPAIRMENT [None]
  - PRODUCT SUBSTITUTION ISSUE [None]
